FAERS Safety Report 9173768 (Version 2)
Quarter: 2013Q2

REPORT INFORMATION
  Report Type: Report from Study
  Country: US (occurrence: US)
  Receive Date: 20130320
  Receipt Date: 20130411
  Transmission Date: 20140414
  Serious: Yes (Other)
  Sender: FDA-Public Use
  Company Number: US-VERTEX PHARMACEUTICALS INC.-2013-003696

PATIENT
  Sex: Female

DRUGS (18)
  1. VX-950 (TELAPREVIR) [Suspect]
     Indication: HEPATITIS C
     Dosage: 750 MG, TID
     Route: 048
     Dates: start: 201301
  2. PEGASYS [Suspect]
     Indication: HEPATITIS C
     Dosage: 180 ?G, QW
     Route: 058
     Dates: start: 201301
  3. RIBAPAK [Suspect]
     Indication: HEPATITIS C
     Dosage: 600 MG, BID
     Route: 048
     Dates: start: 201301
  4. ASTEPRO [Concomitant]
  5. VITAMIN B COMPLEX [Concomitant]
  6. CITRUS BIOFLAVONID [Concomitant]
  7. DANDALION ROOT [Concomitant]
  8. HYDROCHLOROTHIAZIDE [Concomitant]
  9. HYDROXYZINE [Concomitant]
  10. LOVASTAN [Concomitant]
  11. MOXAL [Concomitant]
  12. MILK THISTLE [Concomitant]
  13. MULTIVITAMIN [Concomitant]
  14. NITROFURANTOINA [Concomitant]
  15. RUTIN [Concomitant]
  16. SINGULAIR [Concomitant]
  17. VITAMIN C [Concomitant]
  18. VALACYCLOVIR HCL PHARMA PAC [Concomitant]

REACTIONS (2)
  - Cerebrovascular accident [Unknown]
  - Retinopathy [Unknown]
